FAERS Safety Report 15005581 (Version 2)
Quarter: 2018Q2

REPORT INFORMATION
  Report Type: Spontaneous
  Country: BR (occurrence: BR)
  Receive Date: 20180613
  Receipt Date: 20180619
  Transmission Date: 20180711
  Serious: Yes (Other)
  Sender: FDA-Public Use
  Company Number: BR-PFIZER INC-2018234930

PATIENT
  Age: 84 Year
  Sex: Female

DRUGS (1)
  1. XALATAN [Suspect]
     Active Substance: LATANOPROST
     Indication: INTRAOCULAR PRESSURE INCREASED
     Dosage: 1 DROP EACH EYE (3 MCG OF LATANOPROST)
     Dates: start: 2008

REACTIONS (2)
  - Skin papilloma [Not Recovered/Not Resolved]
  - Benign neoplasm [Recovered/Resolved]

NARRATIVE: CASE EVENT DATE: 2014
